FAERS Safety Report 23609254 (Version 1)
Quarter: 2024Q1

REPORT INFORMATION
  Report Type: Spontaneous
  Country: US (occurrence: US)
  Receive Date: 20240308
  Receipt Date: 20240308
  Transmission Date: 20240410
  Serious: Yes (Other)
  Sender: FDA-Public Use
  Company Number: US-BAUSCHBL-2024BNL002719

PATIENT
  Age: 79 Year
  Sex: Female

DRUGS (9)
  1. TIMOLOL [Suspect]
     Active Substance: TIMOLOL
     Indication: Angle closure glaucoma
     Route: 065
  2. TIMOLOL [Suspect]
     Active Substance: TIMOLOL
  3. DORZOLAMIDE [Suspect]
     Active Substance: DORZOLAMIDE
     Indication: Angle closure glaucoma
     Route: 065
  4. BRIMONIDINE [Suspect]
     Active Substance: BRIMONIDINE TARTRATE
     Indication: Angle closure glaucoma
     Route: 065
  5. ARTIFICIAL TEARS (PROPYLENE GLYCOL) [Suspect]
     Active Substance: PROPYLENE GLYCOL
     Indication: Neurotrophic keratopathy
     Route: 065
  6. POLYMYXIN B SULFATE AND TRIMETHOPRIM [Suspect]
     Active Substance: POLYMYXIN B SULFATE\TRIMETHOPRIM SULFATE
     Indication: Neurotrophic keratopathy
     Route: 061
  7. ATROPINE [Concomitant]
     Active Substance: ATROPINE\ATROPINE SULFATE
     Indication: Choroidal effusion
  8. MITOMYCIN C [Concomitant]
     Active Substance: MITOMYCIN
     Indication: Postoperative care
     Dosage: OVER THE PLATE AT POSTOPERATIVE WEEK ONE AND MONTH ONE
  9. PREDNISOLONE [Concomitant]
     Active Substance: PREDNISOLONE
     Indication: Postoperative care
     Dosage: WEEKLY TAPER OVER THE FIRST MONTH.

REACTIONS (1)
  - Therapy non-responder [Unknown]
